FAERS Safety Report 10427334 (Version 1)
Quarter: 2014Q3

REPORT INFORMATION
  Report Type: Spontaneous
  Country: US (occurrence: None)
  Receive Date: 20140902
  Receipt Date: 20140902
  Transmission Date: 20150326
  Serious: Yes (Other)
  Sender: FDA-Public Use
  Company Number: None

PATIENT
  Age: 55 Year
  Sex: Male
  Weight: 99.79 kg

DRUGS (1)
  1. CIALIS [Suspect]
     Active Substance: TADALAFIL
     Indication: ERECTILE DYSFUNCTION
     Dosage: 1  AS NEEDED TAKEN BY MOUTH
     Route: 048
     Dates: start: 20140719, end: 20140726

REACTIONS (3)
  - Drug ineffective [None]
  - Product quality issue [None]
  - Suspected counterfeit product [None]

NARRATIVE: CASE EVENT DATE: 20140712
